FAERS Safety Report 7042576-4 (Version None)
Quarter: 2010Q4

REPORT INFORMATION
  Report Type: 
  Country: None (occurrence: None)
  Receive Date: 20101013
  Receipt Date: 20101004
  Transmission Date: 20110411
  Serious: Yes (Hospitalization)
  Sender: FDA-Public Use
  Company Number: GXKR2010GB04515

PATIENT
  Age: 19 Year
  Sex: Female

DRUGS (8)
  1. AMOXICILLIN [Suspect]
     Dosage: UNK
     Route: 048
     Dates: start: 20100413, end: 20100413
  2. DO-DO (NCH) [Suspect]
     Dosage: UNK
     Route: 048
     Dates: start: 20100413, end: 20100413
  3. PARACETAMOL (NCH) [Suspect]
     Dosage: UNK
     Route: 048
     Dates: start: 20100413, end: 20100413
  4. PHENYLEPHRINE (NCH) [Suspect]
     Dosage: UNK
     Route: 048
     Dates: start: 20100413, end: 20100413
  5. NYTOL [Suspect]
     Dosage: UNK
     Route: 048
     Dates: start: 20100413, end: 20100413
  6. THEOPHYLLINE [Suspect]
     Dosage: UNK
     Route: 048
     Dates: start: 20100413, end: 20100413
  7. ZOPICLONE [Suspect]
     Dosage: 71.25 MG, UNK
     Route: 048
     Dates: start: 20100413, end: 20100413
  8. ALCOHOL [Suspect]
     Route: 065

REACTIONS (4)
  - BLOOD CREATINE PHOSPHOKINASE INCREASED [None]
  - INTENTIONAL OVERDOSE [None]
  - MYALGIA [None]
  - RHABDOMYOLYSIS [None]
